FAERS Safety Report 15008928 (Version 3)
Quarter: 2018Q3

REPORT INFORMATION
  Report Type: Spontaneous
  Country: JP (occurrence: JP)
  Receive Date: 20180614
  Receipt Date: 20180727
  Transmission Date: 20181010
  Serious: Yes (Disabling)
  Sender: FDA-Public Use
  Company Number: JP-AMGEN-JPNSP2018079209

PATIENT
  Age: 76 Year
  Sex: Female
  Weight: 58 kg

DRUGS (4)
  1. MUCOSTA [Concomitant]
     Active Substance: REBAMIPIDE
     Indication: BONE PAIN
     Dosage: 100 MG, AS NECESSARY (AS NEEDED)
     Route: 048
     Dates: start: 20160304
  2. DENOTAS [Concomitant]
     Active Substance: CALCIUM CARBONATE\CHOLECALCIFEROL\MAGNESIUM CARBONATE
     Indication: PRODUCT USED FOR UNKNOWN INDICATION
     Dosage: UNK
     Route: 048
     Dates: start: 20140825, end: 20170818
  3. RANMARK [Suspect]
     Active Substance: DENOSUMAB
     Indication: METASTASES TO BONE
     Dosage: 120 MG, Q4WK
     Route: 023
     Dates: start: 20140825, end: 20170714
  4. LOXOPROFEN [Concomitant]
     Active Substance: LOXOPROFEN
     Indication: BONE PAIN
     Dosage: 60 MG, AS NECESSARY (AS NEEDED)
     Route: 048
     Dates: start: 20160304

REACTIONS (2)
  - Osteonecrosis of jaw [Not Recovered/Not Resolved]
  - Periodontal disease [Unknown]
